FAERS Safety Report 9131269 (Version 3)
Quarter: 2013Q4

REPORT INFORMATION
  Report Type: Spontaneous
  Country: US (occurrence: US)
  Receive Date: 20130301
  Receipt Date: 20131112
  Transmission Date: 20140711
  Serious: Yes (Hospitalization, Disabling, Other)
  Sender: FDA-Public Use
  Company Number: US-SANOFI-AVENTIS-2013SA018223

PATIENT
  Age: 58 Year
  Sex: Male

DRUGS (2)
  1. LANTUS [Suspect]
     Indication: TYPE 1 DIABETES MELLITUS
     Dosage: DOSE:35 UNIT(S)
     Route: 058
     Dates: start: 2003
  2. NOVOLOG [Suspect]
     Indication: TYPE 1 DIABETES MELLITUS
     Route: 058

REACTIONS (13)
  - Cardiac operation [Unknown]
  - Surgery [Unknown]
  - Neuropathy peripheral [Unknown]
  - Walking aid user [Unknown]
  - Myocardial infarction [Unknown]
  - Cardiac disorder [Unknown]
  - Renal failure chronic [Unknown]
  - Pneumonia [Unknown]
  - Visual impairment [Unknown]
  - Enteritis [Unknown]
  - Dyspepsia [Unknown]
  - Blood glucose decreased [Unknown]
  - Blood glucose increased [Unknown]
